FAERS Safety Report 6852676-7 (Version None)
Quarter: 2010Q3

REPORT INFORMATION
  Report Type: 
  Country: None (occurrence: None)
  Receive Date: 20100717
  Receipt Date: 20071120
  Transmission Date: 20110219
  Serious: No
  Sender: FDA-Public Use
  Company Number: US-PFIZER INC-2007100297

PATIENT
  Sex: Female
  Weight: 61.8 kg

DRUGS (3)
  1. CHANTIX [Suspect]
     Indication: SMOKING CESSATION THERAPY
     Dates: start: 20071022
  2. METOPROLOL [Concomitant]
     Indication: HYPERTENSION
  3. NIFEDICAL [Concomitant]
     Indication: HYPERTENSION

REACTIONS (2)
  - HYPOAESTHESIA [None]
  - PARAESTHESIA [None]
